FAERS Safety Report 17663899 (Version 1)
Quarter: 2020Q2

REPORT INFORMATION
  Report Type: Spontaneous
  Country: HU (occurrence: HU)
  Receive Date: 20200414
  Receipt Date: 20200414
  Transmission Date: 20200713
  Serious: Yes (Hospitalization)
  Sender: FDA-Public Use
  Company Number: HU-SUN PHARMACEUTICAL INDUSTRIES LTD-2020R1-243037

PATIENT
  Age: 34 Year
  Sex: Female

DRUGS (5)
  1. EPOPROSTENOL. [Suspect]
     Active Substance: EPOPROSTENOL
     Dosage: 7 NG/KG/MIN, UNK
     Route: 042
  2. EPOPROSTENOL. [Suspect]
     Active Substance: EPOPROSTENOL
     Indication: PULMONARY HYPERTENSION
     Dosage: 2 NG/KG/MIN, UNK
     Route: 042
  3. FUROSEMIDE. [Suspect]
     Active Substance: FUROSEMIDE
     Indication: DIURETIC THERAPY
     Dosage: 20 MILLIGRAM, 1DOSE/12HOUR
     Route: 065
  4. ENOXAPARIN SODIUM. [Suspect]
     Active Substance: ENOXAPARIN SODIUM
     Indication: ANTICOAGULANT THERAPY
     Dosage: 60 MILLIGRAM, UNK
     Route: 058
  5. LEVOSIMENDAN [Suspect]
     Active Substance: LEVOSIMENDAN
     Indication: CARDIOVASCULAR EVENT PROPHYLAXIS
     Dosage: UNK, 0.07MCG/KG/MIN DOSE
     Route: 065

REACTIONS (3)
  - Premature delivery [Unknown]
  - Vascular resistance systemic decreased [Recovered/Resolved]
  - Exposure during pregnancy [Unknown]
